FAERS Safety Report 9484967 (Version 1)
Quarter: 2013Q3

REPORT INFORMATION
  Report Type: Report from Study
  Country: US (occurrence: US)
  Receive Date: 20130828
  Receipt Date: 20130828
  Transmission Date: 20140515
  Serious: No
  Sender: FDA-Public Use
  Company Number: US-ABBOTT-13P-163-1096625-00

PATIENT
  Sex: Male
  Weight: 74.91 kg

DRUGS (3)
  1. ANDROGEL [Suspect]
     Indication: BLOOD TESTOSTERONE DECREASED
     Dosage: 2 PUMPS DAILY
     Dates: start: 201304
  2. ANDROGEL [Suspect]
     Dosage: 1 PUMP PER DAY
  3. ANDROGEL [Suspect]
     Dosage: 2 PUMPS PER DAY

REACTIONS (1)
  - Myalgia [Recovering/Resolving]
